FAERS Safety Report 6383010-7 (Version None)
Quarter: 2009Q3

REPORT INFORMATION
  Report Type: 
  Country: None (occurrence: None)
  Receive Date: 20090930
  Receipt Date: 20090928
  Transmission Date: 20100115
  Serious: Yes (Hospitalization)
  Sender: FDA-Public Use
  Company Number: US-B.I. PHARMACEUTICALS,INC./RIDGEFIELD-2009-BP-10413BP

PATIENT
  Age: 87 Year
  Sex: Female

DRUGS (4)
  1. ATROVENT [Suspect]
     Indication: SINUS DISORDER
     Route: 055
  2. ATROVENT [Suspect]
     Indication: HYPERSENSITIVITY
  3. B/P MED [Concomitant]
     Indication: CARDIOMEGALY
  4. B/P MED [Concomitant]
     Indication: HYPERTENSION

REACTIONS (1)
  - HEART VALVE INCOMPETENCE [None]
